FAERS Safety Report 8444424-4 (Version None)
Quarter: 2012Q2

REPORT INFORMATION
  Report Type: 
  Country: None (occurrence: None)
  Receive Date: 20120618
  Receipt Date: 20120605
  Transmission Date: 20120825
  Serious: Yes (Other)
  Sender: FDA-Public Use
  Company Number: US-SANOFI-AVENTIS-2012SA040367

PATIENT
  Age: 46 Year
  Sex: Male

DRUGS (5)
  1. RIFAMPICIN [Suspect]
     Route: 065
  2. ALL OTHER THERAPEUTIC PRODUCTS [Concomitant]
     Indication: ERYTHRODERMIC PSORIASIS
  3. ISONIAZID [Concomitant]
  4. ACITRETIN [Concomitant]
     Indication: ERYTHRODERMIC PSORIASIS
  5. ALL OTHER THERAPEUTIC PRODUCTS [Concomitant]
     Route: 061

REACTIONS (1)
  - ACUTE GENERALISED EXANTHEMATOUS PUSTULOSIS [None]
